FAERS Safety Report 4452208-7 (Version None)
Quarter: 2004Q3

REPORT INFORMATION
  Report Type: 
  Country: None (occurrence: None)
  Receive Date: 20040917
  Receipt Date: 20040908
  Transmission Date: 20050211
  Serious: Yes (Death)
  Sender: FDA-Public Use
  Company Number: CH-JNJFOC-20040902374

PATIENT
  Age: 34 Year
  Sex: Female

DRUGS (7)
  1. TRAMAL [Suspect]
     Indication: DRUG USE FOR UNKNOWN INDICATION
     Route: 049
  2. AURORIX [Interacting]
     Indication: DRUG USE FOR UNKNOWN INDICATION
     Dosage: 1.5-3G TOTAL DOSE.
     Route: 049
  3. SEROPRAM [Interacting]
     Indication: DRUG USE FOR UNKNOWN INDICATION
     Route: 047
  4. KOKAIN [Interacting]
     Indication: DRUG USE FOR UNKNOWN INDICATION
     Route: 042
  5. HEROIN [Interacting]
     Indication: DRUG USE FOR UNKNOWN INDICATION
     Route: 045
  6. BENZODIAZEPINE [Suspect]
     Indication: DRUG USE FOR UNKNOWN INDICATION
     Route: 065
  7. CANNABIS [Suspect]
     Indication: DRUG USE FOR UNKNOWN INDICATION
     Route: 065

REACTIONS (13)
  - COMA [None]
  - DIAPHRAGMATIC PARALYSIS [None]
  - DRUG INTERACTION [None]
  - ELECTROMECHANICAL DISSOCIATION [None]
  - HYPERTHERMIA [None]
  - HYPOTENSION [None]
  - MULTIPLE DRUG OVERDOSE [None]
  - RESPIRATORY ARREST [None]
  - SEROTONIN SYNDROME [None]
  - SOMNOLENCE [None]
  - SUICIDE ATTEMPT [None]
  - TACHYCARDIA [None]
  - VENTRICULAR TACHYCARDIA [None]
